FAERS Safety Report 9681473 (Version 1)
Quarter: 2013Q4

REPORT INFORMATION
  Report Type: Report from Study
  Country: US (occurrence: US)
  Receive Date: 20131111
  Receipt Date: 20131111
  Transmission Date: 20140711
  Serious: Yes (Hospitalization)
  Sender: FDA-Public Use
  Company Number: US-ABBVIE-13P-163-1165865-00

PATIENT
  Sex: Female
  Weight: 83.08 kg

DRUGS (9)
  1. HUMIRA [Suspect]
     Indication: PSORIASIS
     Dates: start: 2009, end: 2012
  2. HUMIRA [Suspect]
     Indication: PSORIATIC ARTHROPATHY
     Dates: start: 2012, end: 201306
  3. HUMIRA [Suspect]
     Dates: start: 201310
  4. OMEPRAZOLE [Concomitant]
     Indication: GASTROOESOPHAGEAL REFLUX DISEASE
  5. LORATADINE [Concomitant]
     Indication: HYPERSENSITIVITY
  6. NORVASC [Concomitant]
     Indication: HYPERTENSION
  7. MAXZIDE [Concomitant]
     Indication: HYPERTENSION
  8. TRIAMTERENE [Concomitant]
     Indication: HYPERTENSION
  9. CELEBREX [Concomitant]
     Indication: PAIN

REACTIONS (5)
  - Uterine prolapse [Recovered/Resolved]
  - Pollakiuria [Recovered/Resolved]
  - Haemorrhage [Recovered/Resolved]
  - Impaired healing [Recovered/Resolved]
  - Psoriasis [Recovered/Resolved]
